FAERS Safety Report 21745957 (Version 1)
Quarter: 2022Q4

REPORT INFORMATION
  Report Type: Report from Study
  Country: NL (occurrence: NL)
  Receive Date: 20221219
  Receipt Date: 20221219
  Transmission Date: 20230112
  Serious: Yes (Other)
  Sender: FDA-Public Use
  Company Number: NL-ABBVIE-4241566

PATIENT
  Age: 54 Year
  Sex: Male

DRUGS (8)
  1. CARBIDOPA\LEVODOPA [Suspect]
     Active Substance: CARBIDOPA\LEVODOPA
     Indication: Parkinson^s disease
     Dosage: MD: 8.0 ML, CD: 3.5 ML/H, ED: 1.5 ML, REMAINS AT 16 HOURS, FIRST ADMIN DATE: 07 NOV 2022, LAST AD...
     Route: 050
  2. CARBIDOPA\LEVODOPA [Suspect]
     Active Substance: CARBIDOPA\LEVODOPA
     Dosage: MD: 11.0 ML, CD: 3.0 ML/H, ED: 3.0 ML, REMAINS AT 16 HOURS, ?FIRST AND LAST ADMIN DATE: 2022
     Route: 050
  3. CARBIDOPA\LEVODOPA [Suspect]
     Active Substance: CARBIDOPA\LEVODOPA
     Dosage: MD: 11.0 ML, CD: 4.0 ML/H, ED: 2.7 ML, REMAINS AT 16 HOURS, ?FIRST AND LAST ADMIN DATE: 2022
     Route: 050
  4. CARBIDOPA\LEVODOPA [Suspect]
     Active Substance: CARBIDOPA\LEVODOPA
     Dosage: MD: 8.0 ML, CD: 3.8  ML/H, ED: 2.5 ML, REMAINS AT 16 HOURS, ?FIRST AND LAST ADMIN DATE: 2022
     Route: 050
  5. CARBIDOPA\LEVODOPA [Suspect]
     Active Substance: CARBIDOPA\LEVODOPA
     Dosage: MD: 11.0 ML, CD: 3.8  ML/H, ED: 2.5 ML, REMAINS AT 16 HOURS, ?FIRST AND LAST ADMIN DATE: 2022
     Route: 050
  6. CARBIDOPA\LEVODOPA [Suspect]
     Active Substance: CARBIDOPA\LEVODOPA
     Dosage: MD: 11.0 ML, CD: 3.8 ML/H, ED: 3.0 ML, REMAINS AT 16 HOURS, ?FIRST AND LAST ADMIN DATE: 2022
     Route: 050
  7. Ropinirol 2 Milligram [Concomitant]
     Indication: Product used for unknown indication
     Route: 048
     Dates: start: 20200630
  8. CLONAZEPAM [Concomitant]
     Active Substance: CLONAZEPAM
     Indication: Product used for unknown indication

REACTIONS (14)
  - Rehabilitation therapy [Not Recovered/Not Resolved]
  - Tremor [Not Recovered/Not Resolved]
  - Freezing phenomenon [Not Recovered/Not Resolved]
  - Salivary hypersecretion [Not Recovered/Not Resolved]
  - Speech disorder [Not Recovered/Not Resolved]
  - Unevaluable event [Not Recovered/Not Resolved]
  - Dyskinesia [Not Recovered/Not Resolved]
  - Stress [Recovering/Resolving]
  - Panic disorder [Not Recovered/Not Resolved]
  - Hallucination, visual [Not Recovered/Not Resolved]
  - Memory impairment [Not Recovered/Not Resolved]
  - Weight decreased [Not Recovered/Not Resolved]
  - Motor dysfunction [Not Recovered/Not Resolved]
  - On and off phenomenon [Unknown]

NARRATIVE: CASE EVENT DATE: 20220101
